FAERS Safety Report 17971111 (Version 2)
Quarter: 2021Q2

REPORT INFORMATION
  Report Type: Spontaneous
  Country: ES (occurrence: ES)
  Receive Date: 20200701
  Receipt Date: 20210604
  Transmission Date: 20210717
  Serious: Yes (Hospitalization)
  Sender: FDA-Public Use
  Company Number: NVSC2020ES185088

PATIENT
  Age: 56 Year
  Sex: Male

DRUGS (2)
  1. SACUBITRIL,VALSARTAN [Suspect]
     Active Substance: SACUBITRIL\VALSARTAN
     Indication: CARDIOMYOPATHY
     Dosage: 24+26 MG, Q12H, 1 DF, Q12H (24 PLUS 26 MG/12 H)
     Route: 065
  2. SACUBITRIL,VALSARTAN [Suspect]
     Active Substance: SACUBITRIL\VALSARTAN
     Indication: EJECTION FRACTION DECREASED

REACTIONS (2)
  - Substance-induced psychotic disorder [Recovered/Resolved]
  - Product use in unapproved indication [Unknown]
